FAERS Safety Report 4389084-7 (Version None)
Quarter: 2004Q3

REPORT INFORMATION
  Report Type: 
  Country: None (occurrence: None)
  Receive Date: 20040702
  Receipt Date: 20040618
  Transmission Date: 20050211
  Serious: Yes (Other)
  Sender: FDA-Public Use
  Company Number: 200416214GDDC

PATIENT
  Age: 60 Year
  Sex: Female
  Weight: 79.2 kg

DRUGS (6)
  1. AMARYL [Suspect]
     Indication: DIABETES MELLITUS NON-INSULIN-DEPENDENT
     Route: 048
     Dates: start: 20040124
  2. FLUPHENAZINE [Suspect]
     Indication: SCHIZOPHRENIA
     Route: 030
  3. ATENOLOL [Concomitant]
     Indication: HYPERTENSION
     Route: 048
     Dates: start: 19990911
  4. PRAVASTATIN [Concomitant]
     Route: 048
     Dates: start: 20020513
  5. METFORMIN [Concomitant]
     Indication: DIABETES MELLITUS
     Route: 048
     Dates: start: 20040124
  6. CLOTRIMAZOLE [Concomitant]
     Route: 061
     Dates: start: 20010813

REACTIONS (2)
  - CONDITION AGGRAVATED [None]
  - PSYCHOTIC DISORDER [None]
